FAERS Safety Report 5941244-7 (Version None)
Quarter: 2008Q4

REPORT INFORMATION
  Report Type: 
  Country: None (occurrence: None)
  Receive Date: 20081104
  Receipt Date: 20081104
  Transmission Date: 20090506
  Serious: Yes (Hospitalization)
  Sender: FDA-Public Use
  Company Number: None

PATIENT
  Age: 62 Year
  Sex: Male
  Weight: 64.4108 kg

DRUGS (19)
  1. FLUOROURACIL [Suspect]
     Indication: HEAD AND NECK CANCER
     Dates: start: 20060414
  2. DOCETAXEL [Suspect]
     Indication: HEAD AND NECK CANCER
     Dates: start: 20060414
  3. HYDROXYUREA [Suspect]
     Indication: HEAD AND NECK CANCER
     Dates: start: 20060414
  4. CIPRO [Concomitant]
  5. GLYBURIDE [Concomitant]
  6. ZOLOFT [Concomitant]
  7. PRNATAL VITAMIN [Concomitant]
  8. ALLOPURINOL [Concomitant]
  9. LISINOPRIL [Concomitant]
  10. METOPROLOL TARTRATE [Concomitant]
  11. NIFEREX-150 [Concomitant]
  12. DILTIAZEM HCL [Concomitant]
  13. RANITIDINE [Concomitant]
  14. MOM [Concomitant]
  15. ALPRAZOLAM [Concomitant]
  16. VICODIN [Concomitant]
  17. COMPAZINE [Concomitant]
  18. LOPERAMIDE HCL [Concomitant]
  19. SALINE NASAL SPRAY [Concomitant]

REACTIONS (13)
  - ASTHENIA [None]
  - BRADYCARDIA [None]
  - CONFUSIONAL STATE [None]
  - DYSPHAGIA [None]
  - DYSPNOEA [None]
  - HALLUCINATION [None]
  - HYPOGLYCAEMIA [None]
  - HYPOPHAGIA [None]
  - HYPOTENSION [None]
  - MUCOSAL DRYNESS [None]
  - SEPSIS [None]
  - UNRESPONSIVE TO STIMULI [None]
  - URINARY TRACT INFECTION [None]
